FAERS Safety Report 6061514-4 (Version None)
Quarter: 2009Q1

REPORT INFORMATION
  Report Type: 
  Country: None (occurrence: None)
  Receive Date: 20090202
  Receipt Date: 20090120
  Transmission Date: 20090719
  Serious: Yes (Other)
  Sender: FDA-Public Use
  Company Number: FR-ROCHE-610929

PATIENT
  Sex: Female

DRUGS (4)
  1. CELLCEPT [Suspect]
     Indication: DRUG USE FOR UNKNOWN INDICATION
     Route: 065
  2. NEORAL [Concomitant]
  3. PROGRAF [Concomitant]
  4. CORTICOSTEROIDS [Concomitant]

REACTIONS (1)
  - CHOROIDITIS [None]
